FAERS Safety Report 7530114-9 (Version None)
Quarter: 2011Q2

REPORT INFORMATION
  Report Type: 
  Country: None (occurrence: None)
  Receive Date: 20110607
  Receipt Date: 20110526
  Transmission Date: 20111010
  Serious: Yes (Hospitalization, Other)
  Sender: FDA-Public Use
  Company Number: US-JNJFOC-2010029489

PATIENT
  Sex: Female
  Weight: 83.92 kg

DRUGS (20)
  1. ASPIRIN [Concomitant]
     Route: 048
  2. NORVASC [Concomitant]
     Route: 048
  3. PHENERGAN HCL [Concomitant]
     Indication: NAUSEA
     Dosage: EVERY 4 HOURS AS NEEDED
     Route: 065
  4. PEPCID [Concomitant]
     Route: 065
  5. CRESTOR [Concomitant]
     Indication: BLOOD CHOLESTEROL DECREASED
     Route: 048
  6. LISINOPRIL AND HYDROCHLOROTHIAZIDE [Concomitant]
     Dosage: 20-25 MG DAILY
     Route: 048
  7. ROLAIDS [Suspect]
     Indication: DYSPEPSIA
     Dosage: ONE PACK A DAY, SIX COUNT
     Route: 048
     Dates: start: 20090901, end: 20101213
  8. ROLAIDS [Suspect]
     Dosage: ONE PACK A DAY, SIX COUNT
     Route: 048
     Dates: start: 20090901, end: 20101213
  9. NITROGLYCERIN [Concomitant]
     Route: 061
  10. PHENERGAN HCL [Concomitant]
     Dosage: EVERY 4 HOURS AS NEEDED
     Route: 065
  11. ATIVAN [Concomitant]
     Indication: ANXIETY
     Route: 065
  12. LOVENOX [Concomitant]
     Route: 058
  13. PROTONIX [Concomitant]
     Route: 065
  14. ATIVAN [Concomitant]
     Route: 065
     Dates: start: 20100823
  15. ASPIRIN [Concomitant]
     Route: 048
  16. NORVASC [Concomitant]
     Route: 048
  17. LOVENOX [Concomitant]
     Route: 058
  18. PRILOSEC [Concomitant]
     Indication: GASTRIC PH INCREASED
     Route: 048
  19. PROTONIX [Concomitant]
     Route: 065
  20. GAVISCON [Concomitant]
     Route: 065

REACTIONS (12)
  - DEHYDRATION [None]
  - LEUKOCYTOSIS [None]
  - PRODUCT QUALITY ISSUE [None]
  - CHILLS [None]
  - VOMITING [None]
  - PYREXIA [None]
  - NAUSEA [None]
  - ABDOMINAL PAIN UPPER [None]
  - CONSTIPATION [None]
  - INCORRECT DRUG ADMINISTRATION DURATION [None]
  - EXPIRED DRUG ADMINISTERED [None]
  - MYOCARDIAL INFARCTION [None]
